FAERS Safety Report 6697431-6 (Version None)
Quarter: 2010Q2

REPORT INFORMATION
  Report Type: 
  Country: None (occurrence: None)
  Receive Date: 20100426
  Receipt Date: 20100421
  Transmission Date: 20101027
  Serious: Yes (Other)
  Sender: FDA-Public Use
  Company Number: CHPA2010US07096

PATIENT
  Age: 52 Year
  Sex: Female

DRUGS (7)
  1. BENEFIBER PLUS CALCIUM (NCH) [Suspect]
     Indication: BOWEL MOVEMENT IRREGULARITY
     Dosage: 3 TSP, 2 TIMES A WEEK
     Route: 048
  2. SIMVASTATIN [Concomitant]
     Dosage: UNK, UNK
     Route: 065
  3. PLAVIX [Concomitant]
     Dosage: UNK, UNK
     Route: 065
  4. ATENOLOL [Concomitant]
     Dosage: UNK, UNK
     Route: 065
  5. LISINOPRIL [Concomitant]
     Dosage: UNK, UNK
     Route: 065
  6. CALCIUM CARBONATE [Concomitant]
     Dosage: UNK, UNK
     Route: 048
  7. FISH OIL [Concomitant]
     Dosage: UNK, UNK
     Route: 048

REACTIONS (2)
  - CORONARY ARTERY DISEASE [None]
  - OFF LABEL USE [None]
